FAERS Safety Report 15614385 (Version 3)
Quarter: 2019Q2

REPORT INFORMATION
  Report Type: Spontaneous
  Country: US (occurrence: US)
  Receive Date: 20181113
  Receipt Date: 20190401
  Transmission Date: 20190711
  Serious: No
  Sender: FDA-Public Use
  Company Number: US-PFIZER INC-2018092909

PATIENT
  Age: 63 Year
  Sex: Female

DRUGS (6)
  1. DOCETAXEL ACCORD [Suspect]
     Active Substance: DOCETAXEL
     Indication: BREAST CANCER FEMALE
     Dosage: 142 MG, CYCLIC (4 CYCLES, EVERY 3 WKS) (AT 75MG/M2 OF 10MG/ML) DAILY OVER 1 HR FOR 1 DAY IN NS 250ML
     Route: 042
     Dates: start: 20120906, end: 20121107
  2. TAXOTERE [Concomitant]
     Active Substance: DOCETAXEL
     Indication: BREAST CANCER FEMALE
     Dosage: 142 MG (AT 75MG/M2 OF 10MG/ML) DAILY SHORT OVER 1 HOUR FOR 1 DAY IN NS 250 ML
     Route: 042
  3. DOCETAXEL. [Suspect]
     Active Substance: DOCETAXEL
     Dosage: UNK
  4. NEOSAR [Concomitant]
     Active Substance: CYCLOPHOSPHAMIDE
     Indication: CHEMOTHERAPY
     Dosage: UNK
  5. CYTOXAN [Concomitant]
     Active Substance: CYCLOPHOSPHAMIDE
     Indication: BREAST CANCER FEMALE
     Dosage: 1134 MG (AT 600 MG/M2) (OF 20 MG/ML) DAILY SHORT OVER 1 HOUR FOR 1 DAY IN NS 250ML
     Route: 042
  6. DOCETAXEL. [Suspect]
     Active Substance: DOCETAXEL
     Indication: BREAST CANCER FEMALE
     Dosage: 142 MG, CYCLIC (4 CYCLES, EVERY 3 WKS) (AT 75MG/M2 OF 10MG/ML) DAILY OVER 1 HR FOR 1 DAY IN NS 250ML
     Route: 042
     Dates: start: 20120906, end: 20121107

REACTIONS (7)
  - Hair disorder [Not Recovered/Not Resolved]
  - Hair texture abnormal [Not Recovered/Not Resolved]
  - Hair colour changes [Not Recovered/Not Resolved]
  - Madarosis [Not Recovered/Not Resolved]
  - Anxiety [Unknown]
  - Emotional distress [Unknown]
  - Alopecia [Not Recovered/Not Resolved]

NARRATIVE: CASE EVENT DATE: 20130416
